FAERS Safety Report 8387916-9 (Version None)
Quarter: 2012Q2

REPORT INFORMATION
  Report Type: 
  Country: None (occurrence: None)
  Receive Date: 20120525
  Receipt Date: 20120517
  Transmission Date: 20120825
  Serious: Yes (Other)
  Sender: FDA-Public Use
  Company Number: US-MERCK-1111USA02501

PATIENT
  Age: 52 Year
  Sex: Female
  Weight: 54 kg

DRUGS (2)
  1. ACTONEL [Suspect]
     Indication: OSTEOPENIA
     Route: 065
     Dates: start: 20070101, end: 20100101
  2. FOSAMAX [Suspect]
     Indication: OSTEOPENIA
     Route: 048
     Dates: start: 20050101, end: 20070101

REACTIONS (21)
  - OSTEONECROSIS OF JAW [None]
  - ORAL INFECTION [None]
  - IMPAIRED HEALING [None]
  - INGUINAL HERNIA [None]
  - BLOOD CHOLESTEROL INCREASED [None]
  - BREAST CYST [None]
  - OSTEOMYELITIS [None]
  - EXOSTOSIS [None]
  - PALPITATIONS [None]
  - ORAL DISORDER [None]
  - OSTEOARTHRITIS [None]
  - ARTHRITIS [None]
  - ARTHROPATHY [None]
  - ABSCESS [None]
  - DENTAL CARIES [None]
  - ACTINOMYCOSIS [None]
  - BREAST DISORDER [None]
  - SCOLIOSIS [None]
  - ACTINOMYCES TEST POSITIVE [None]
  - HYPERTENSION [None]
  - TOOTH DISORDER [None]
